FAERS Safety Report 10195779 (Version 2)
Quarter: 2015Q1

REPORT INFORMATION
  Report Type: Spontaneous
  Country: US (occurrence: None)
  Receive Date: 20140522
  Receipt Date: 20150202
  Transmission Date: 20150720
  Serious: Yes (Hospitalization)
  Sender: FDA-Public Use
  Company Number: UNT-2014-000164

PATIENT
  Age: 6 Year
  Sex: Female

DRUGS (4)
  1. REMODULIN [Suspect]
     Active Substance: TREPROSTINIL
     Indication: PULMONARY ARTERIAL HYPERTENSION
     Dosage: 0.116 UG/KG/MIN
     Route: 041
     Dates: start: 20130124
  2. REVATIO (SILDENAFIL CITRATE) [Concomitant]
  3. COUMADIN [Concomitant]
     Active Substance: WARFARIN SODIUM
  4. REMODULIN [Suspect]
     Active Substance: TREPROSTINIL
     Indication: COR PULMONALE CHRONIC
     Dosage: 0.116 UG/KG/MIN
     Route: 041
     Dates: start: 20130124

REACTIONS (2)
  - Viral infection [None]
  - Rhinovirus infection [None]

NARRATIVE: CASE EVENT DATE: 2014
